FAERS Safety Report 12237649 (Version 1)
Quarter: 2016Q2

REPORT INFORMATION
  Report Type: Spontaneous
  Country: US (occurrence: None)
  Receive Date: 20160404
  Receipt Date: 20160404
  Transmission Date: 20160815
  Serious: Yes (Other)
  Sender: FDA-Public Use
  Company Number: None

PATIENT
  Age: 35 Year
  Sex: Female

DRUGS (1)
  1. HUMIRA [Suspect]
     Active Substance: ADALIMUMAB
     Indication: CROHN^S DISEASE
     Route: 058
     Dates: start: 201504, end: 201505

REACTIONS (5)
  - Dizziness [None]
  - Influenza like illness [None]
  - Headache [None]
  - Arthralgia [None]
  - Myalgia [None]

NARRATIVE: CASE EVENT DATE: 20150401
